FAERS Safety Report 8512906-2 (Version None)
Quarter: 2012Q3

REPORT INFORMATION
  Report Type: 
  Country: None (occurrence: None)
  Receive Date: 20120716
  Receipt Date: 20120713
  Transmission Date: 20120928
  Serious: Yes (Hospitalization, Other)
  Sender: FDA-Public Use
  Company Number: PHHY2012GB022901

PATIENT
  Age: 55 Year
  Sex: Male
  Weight: 71.4 kg

DRUGS (11)
  1. DEXAMETHASONE [Suspect]
     Dosage: 160 MG, QMO
     Route: 048
     Dates: start: 20101018, end: 20101109
  2. AMOXICILLIN [Concomitant]
     Indication: ANTI-INFECTIVE THERAPY
     Route: 048
     Dates: start: 20101025
  3. DEXAMETHASONE [Suspect]
     Indication: MULTIPLE MYELOMA
     Dosage: 160 MG, QMO
     Route: 048
     Dates: start: 20100927, end: 20101017
  4. VELCADE [Suspect]
     Route: 042
     Dates: start: 20101018, end: 20101110
  5. GABAPENTIN [Concomitant]
     Indication: ANALGESIC THERAPY
     Route: 048
     Dates: start: 20101024
  6. ACETAMINOPHEN [Concomitant]
     Indication: ANALGESIC THERAPY
     Route: 048
     Dates: start: 20101025
  7. DOXORUBICIN HCL [Suspect]
     Dosage: 64 MG, QMO
     Route: 042
     Dates: start: 20101018, end: 20101109
  8. VELCADE [Suspect]
     Indication: MULTIPLE MYELOMA
     Route: 042
     Dates: start: 20100927
  9. DOXORUBICIN HCL [Suspect]
     Indication: MULTIPLE MYELOMA
     Dosage: 64 MG/H, QMO
     Route: 042
     Dates: start: 20100927, end: 20101017
  10. FUROSEMIDE [Concomitant]
     Indication: POLYURIA
     Dates: start: 20101111, end: 20101111
  11. ENOXAPARIN SODIUM [Concomitant]
     Indication: PROPHYLAXIS
     Route: 058
     Dates: start: 20101109

REACTIONS (3)
  - DRUG INEFFECTIVE [None]
  - MULTIPLE MYELOMA [None]
  - DIARRHOEA [None]
